FAERS Safety Report 5657910-7 (Version None)
Quarter: 2008Q1

REPORT INFORMATION
  Report Type: 
  Country: None (occurrence: None)
  Receive Date: 20080310
  Receipt Date: 20080227
  Transmission Date: 20080703
  Serious: Yes (Hospitalization)
  Sender: FDA-Public Use
  Company Number: PHBS2008NL02789

PATIENT
  Age: 65 Year
  Sex: Male

DRUGS (4)
  1. EXELON [Suspect]
     Indication: DEMENTIA ALZHEIMER'S TYPE
     Dosage: 9 MG/DAY
  2. EXELON [Suspect]
     Dosage: 6 MG, BID
     Dates: start: 20070101
  3. EXELON [Suspect]
     Dosage: DECREASED TO 4.5 MG, BID
     Dates: end: 20080101
  4. EXELON [Suspect]
     Dosage: 1 DD 9.5 MG/24H
     Route: 062
     Dates: start: 20080101

REACTIONS (3)
  - CEREBROVASCULAR ACCIDENT [None]
  - CHILLS [None]
  - PILOERECTION [None]
